FAERS Safety Report 14733763 (Version 2)
Quarter: 2018Q2

REPORT INFORMATION
  Report Type: Spontaneous
  Country: SE (occurrence: SE)
  Receive Date: 20180409
  Receipt Date: 20180412
  Transmission Date: 20180711
  Serious: Yes (Hospitalization, Other)
  Sender: FDA-Public Use
  Company Number: SE-GLAXOSMITHKLINE-SE2018058389

PATIENT
  Sex: Female

DRUGS (14)
  1. NICORETTE [Suspect]
     Active Substance: NICOTINE
     Dosage: 4 MG, UNK
     Route: 048
  2. NICORETTE [Suspect]
     Active Substance: NICOTINE
     Dosage: UNK
     Route: 048
     Dates: start: 2002
  3. NICORETTE [Suspect]
     Active Substance: NICOTINE
     Dosage: 2 MG, UNK
     Route: 048
     Dates: start: 2010
  4. NASONEX [Concomitant]
     Active Substance: MOMETASONE FUROATE
     Indication: HYPERSENSITIVITY
     Dosage: UNK
     Route: 065
  5. ACETYLCYSTEINE. [Concomitant]
     Active Substance: ACETYLCYSTEINE
     Indication: INCREASED VISCOSITY OF UPPER RESPIRATORY SECRETION
     Dosage: DOSAGE FORM: UNSPECIFIED
     Route: 065
  6. NICORETTE [Suspect]
     Active Substance: NICOTINE
     Indication: SMOKING CESSATION THERAPY
     Dosage: UNK
     Route: 048
     Dates: start: 1997, end: 2002
  7. GIONA [Concomitant]
     Indication: ASTHMA
     Dosage: DOSAGE FORM: UNSPECIFIED, 200 MICROGRAM ONCE DAILY
     Route: 065
  8. AIROMIR [Concomitant]
     Active Substance: ALBUTEROL SULFATE
     Indication: ASTHMA
     Dosage: DOSAGE FORM: UNSPECIFIED
     Route: 065
  9. DESLORATADINE. [Concomitant]
     Active Substance: DESLORATADINE
     Indication: HYPERSENSITIVITY
     Dosage: DOSAGE FORM: UNSPECIFIED
     Route: 065
  10. AIROMIR [Concomitant]
     Active Substance: ALBUTEROL SULFATE
     Indication: HYPERSENSITIVITY
     Dosage: DOSAGE FORM: UNSPECIFIED
     Route: 065
  11. NASONEX [Concomitant]
     Active Substance: MOMETASONE FUROATE
     Indication: ASTHMA
     Dosage: UNK
     Route: 065
  12. GIONA [Concomitant]
     Indication: HYPERSENSITIVITY
     Dosage: DOSAGE FORM: UNSPECIFIED, 200 MICROGRAM ONCE DAILY
     Route: 065
  13. FURIX [Concomitant]
     Active Substance: FUROSEMIDE
     Indication: PRODUCT USED FOR UNKNOWN INDICATION
     Dosage: DOSAGE FORM: UNSPECIFIED
     Route: 065
  14. DESLORATADINE. [Concomitant]
     Active Substance: DESLORATADINE
     Indication: ASTHMA
     Dosage: DOSAGE FORM: UNSPECIFIED
     Route: 065

REACTIONS (9)
  - Coronary artery occlusion [Recovered/Resolved]
  - Incorrect drug administration duration [Unknown]
  - Hypertension [Unknown]
  - Cardiac failure [Unknown]
  - Dry mouth [Unknown]
  - Dyspnoea [Unknown]
  - Overdose [Unknown]
  - Incorrect dose administered [Unknown]
  - Cardiomegaly [Recovering/Resolving]

NARRATIVE: CASE EVENT DATE: 2017
